FAERS Safety Report 10026861 (Version 1)
Quarter: 2014Q1

REPORT INFORMATION
  Report Type: Spontaneous
  Country: CA (occurrence: CA)
  Receive Date: 20140321
  Receipt Date: 20140321
  Transmission Date: 20141002
  Serious: Yes (Hospitalization, Other)
  Sender: FDA-Public Use
  Company Number: CA-AMGEN-CANSP2014019345

PATIENT
  Age: 57 Year
  Sex: Male

DRUGS (3)
  1. ENBREL [Suspect]
     Indication: RHEUMATOID ARTHRITIS
     Dosage: 50 MG, QWK
     Route: 065
     Dates: start: 20101101
  2. METHOTREXATE [Concomitant]
     Dosage: UNK UNK, QWK
  3. ARTHROTEC [Concomitant]
     Dosage: UNK

REACTIONS (1)
  - Cerebrovascular accident [Recovered/Resolved]
